FAERS Safety Report 11276899 (Version 1)
Quarter: 2015Q3

REPORT INFORMATION
  Report Type: Spontaneous
  Country: CH (occurrence: CH)
  Receive Date: 20150716
  Receipt Date: 20150716
  Transmission Date: 20151125
  Serious: Yes (Hospitalization, Other)
  Sender: FDA-Public Use
  Company Number: CH-TEVA-577541ISR

PATIENT
  Age: 89 Year
  Sex: Female
  Weight: 55 kg

DRUGS (5)
  1. AMIODARON-MEPHA 200 [Suspect]
     Active Substance: AMIODARONE
     Indication: ATRIAL FIBRILLATION
     Dosage: 200 MILLIGRAM DAILY; THERAPY START DATE UNKNOWN
     Route: 048
  2. MARCOUMAR 3 MG [Concomitant]
     Dosage: CONTINUING. ACCORDING TO INDIVIDUAL PROTOCOL.
     Route: 048
  3. DIGOXIN-SANDOZ [Suspect]
     Active Substance: DIGOXIN
     Dosage: 0.250 MG PER DAY, BUT NOT TO BE TAKEN ON WEDNESDAYS, FRIDAYS AND SUNDAYS; THERAPY START DATE UNKNOWN
     Route: 048
  4. AMIODARON-MEPHA 200 [Suspect]
     Active Substance: AMIODARONE
     Indication: MYOCARDIAL INFARCTION
  5. CITALOPRAM-MEPHA 20 DISPERSIBLE [Suspect]
     Active Substance: CITALOPRAM HYDROBROMIDE
     Route: 048

REACTIONS (12)
  - Electrocardiogram repolarisation abnormality [Unknown]
  - Torsade de pointes [Recovered/Resolved]
  - Toxicity to various agents [Unknown]
  - Malaise [Unknown]
  - Extrasystoles [Unknown]
  - Toxicity to various agents [None]
  - Electrocardiogram QT prolonged [Recovered/Resolved]
  - Dizziness [Unknown]
  - Syncope [Recovered/Resolved]
  - Nausea [Unknown]
  - Bradycardia [Unknown]
  - Cardioactive drug level increased [Unknown]

NARRATIVE: CASE EVENT DATE: 201505
